FAERS Safety Report 15523308 (Version 1)
Quarter: 2018Q4

REPORT INFORMATION
  Report Type: Spontaneous
  Country: TH (occurrence: TH)
  Receive Date: 20181018
  Receipt Date: 20181018
  Transmission Date: 20190205
  Serious: Yes (Death, Life-Threatening)
  Sender: FDA-Public Use
  Company Number: TH-ALVOGEN-2018-ALVOGEN-097609

PATIENT
  Age: 59 Year
  Sex: Female

DRUGS (2)
  1. EXEMESTANE. [Suspect]
     Active Substance: EXEMESTANE
     Indication: BREAST CANCER
     Route: 048
  2. EXEMESTANE. [Suspect]
     Active Substance: EXEMESTANE
     Indication: OVARIAN CANCER
     Route: 048

REACTIONS (1)
  - Death [Fatal]
